FAERS Safety Report 8210222-X (Version None)
Quarter: 2012Q1

REPORT INFORMATION
  Report Type: 
  Country: None (occurrence: None)
  Receive Date: 20120314
  Receipt Date: 20120307
  Transmission Date: 20120608
  Serious: Yes (Life-Threatening, Hospitalization, Other)
  Sender: FDA-Public Use
  Company Number: JP-TEVA-2011002719

PATIENT
  Sex: Female
  Weight: 40 kg

DRUGS (10)
  1. TREANDA [Suspect]
     Indication: MANTLE CELL LYMPHOMA
     Route: 042
     Dates: start: 20110201
  2. RITUXIMAB [Suspect]
     Indication: MANTLE CELL LYMPHOMA
     Route: 042
     Dates: start: 20110302
  3. FAMOTIDINE [Concomitant]
  4. ETIZOLAM [Concomitant]
  5. FLUNITRAZEPAM [Concomitant]
     Dates: start: 20110228
  6. FLUCONAZOLE [Concomitant]
     Dates: start: 20110201
  7. PRIMIDONE [Concomitant]
  8. GARENOXACIN MESYLATE [Concomitant]
     Dates: start: 20110201, end: 20110405
  9. ISOSORBIDE DINITRATE [Concomitant]
  10. MIANSERIN HYDROCHLORIDE [Concomitant]

REACTIONS (8)
  - HYPOKALAEMIA [None]
  - DIARRHOEA [None]
  - HEPATITIS B [None]
  - LIVER DISORDER [None]
  - NEUTROPHIL COUNT DECREASED [None]
  - WHITE BLOOD CELL COUNT DECREASED [None]
  - LYMPHOCYTE COUNT DECREASED [None]
  - PSEUDOMEMBRANOUS COLITIS [None]
